FAERS Safety Report 18940426 (Version 1)
Quarter: 2021Q1

REPORT INFORMATION
  Report Type: Spontaneous
  Country: GB (occurrence: GB)
  Receive Date: 20210225
  Receipt Date: 20210225
  Transmission Date: 20210420
  Serious: Yes (Other)
  Sender: FDA-Public Use
  Company Number: GB-TEVA-2021-GB-1881071

PATIENT
  Age: 54 Year
  Sex: Female
  Weight: 59.87 kg

DRUGS (2)
  1. DOXYCYCLINE. [Suspect]
     Active Substance: DOXYCYCLINE
     Indication: ACNE
     Route: 048
     Dates: start: 202009, end: 202009
  2. VERAMIL [Concomitant]
     Dosage: 120 MG

REACTIONS (1)
  - Tinnitus [Recovered/Resolved with Sequelae]

NARRATIVE: CASE EVENT DATE: 202009
